FAERS Safety Report 20738650 (Version 1)
Quarter: 2022Q2

REPORT INFORMATION
  Report Type: Spontaneous
  Country: US (occurrence: US)
  Receive Date: 20220422
  Receipt Date: 20220422
  Transmission Date: 20220721
  Serious: Yes (Life-Threatening, Hospitalization, Other)
  Sender: FDA-Public Use
  Company Number: None

PATIENT

DRUGS (5)
  1. DOXYCYCLINE [Suspect]
     Active Substance: DOXYCYCLINE
     Indication: Lymphadenopathy
     Dosage: 1 DOSAGE FORM
     Route: 065
     Dates: start: 2017, end: 2017
  2. DOXYCYCLINE [Suspect]
     Active Substance: DOXYCYCLINE
     Indication: Pyrexia
     Dosage: 1 DOSAGE FORM
     Route: 065
     Dates: start: 202008, end: 2020
  3. DOXYCYCLINE [Suspect]
     Active Substance: DOXYCYCLINE
     Indication: Perioral dermatitis
  4. DOXYCYCLINE [Suspect]
     Active Substance: DOXYCYCLINE
     Indication: Dermatitis
  5. IBUPROFEN [Concomitant]
     Active Substance: IBUPROFEN
     Indication: Migraine
     Dosage: UNK, PRN
     Route: 065

REACTIONS (12)
  - Febrile neutropenia [Recovered/Resolved]
  - Beta haemolytic streptococcal infection [Unknown]
  - Aphthous ulcer [Unknown]
  - Rash [Recovered/Resolved]
  - Pharyngitis bacterial [Unknown]
  - Leukopenia [Recovered/Resolved]
  - Arthralgia [Unknown]
  - Lymphadenopathy [Unknown]
  - Pyrexia [Recovered/Resolved]
  - Malaise [Unknown]
  - Headache [Unknown]
  - Intentional product use issue [Recovered/Resolved]

NARRATIVE: CASE EVENT DATE: 20170101
